FAERS Safety Report 12961787 (Version 1)
Quarter: 2016Q4

REPORT INFORMATION
  Report Type: Spontaneous
  Country: US (occurrence: US)
  Receive Date: 20161121
  Receipt Date: 20161121
  Transmission Date: 20170207
  Serious: No
  Sender: FDA-Public Use
  Company Number: US-PFIZER INC-2016538173

PATIENT
  Age: 91 Year

DRUGS (1)
  1. ADVIL [Suspect]
     Active Substance: IBUPROFEN
     Indication: ARTHRALGIA
     Dosage: 1 DF, UNK(ONE ABOUT 2:30 PM TOOK ANOTHER ONE, I GUESS IT MUST HAVE BEEN ABOUT IN THE MIDNIGHT.)
     Dates: start: 20161116, end: 20161116

REACTIONS (5)
  - Feeling abnormal [Unknown]
  - Throat irritation [Unknown]
  - Dysphagia [Unknown]
  - Dyspepsia [Unknown]
  - Middle insomnia [Unknown]

NARRATIVE: CASE EVENT DATE: 201611
